FAERS Safety Report 7075591-5 (Version None)
Quarter: 2010Q4

REPORT INFORMATION
  Report Type: 
  Country: None (occurrence: None)
  Receive Date: 20101030
  Receipt Date: 20101008
  Transmission Date: 20110411
  Serious: No
  Sender: FDA-Public Use
  Company Number: US-WYE-H18151710

PATIENT
  Sex: Male
  Weight: 88.08 kg

DRUGS (5)
  1. PRISTIQ [Suspect]
     Indication: PAIN
     Route: 048
     Dates: start: 20100701
  2. OXYCONTIN [Concomitant]
  3. RITALIN [Concomitant]
  4. COPAXONE [Concomitant]
  5. PERCOCET [Concomitant]

REACTIONS (5)
  - DRUG WITHDRAWAL SYNDROME [None]
  - INSOMNIA [None]
  - INTENTIONAL DRUG MISUSE [None]
  - NIGHTMARE [None]
  - TREMOR [None]
